FAERS Safety Report 8248130-0 (Version None)
Quarter: 2012Q1

REPORT INFORMATION
  Report Type: 
  Country: None (occurrence: None)
  Receive Date: 20120330
  Receipt Date: 20120327
  Transmission Date: 20120608
  Serious: Yes (Hospitalization)
  Sender: FDA-Public Use
  Company Number: US-AMGEN-USACT2011049705

PATIENT
  Age: 68 Year
  Sex: Female
  Weight: 84.55 kg

DRUGS (15)
  1. LOVAZA [Concomitant]
     Dosage: UNK
     Route: 048
     Dates: start: 20021001
  2. TRIAMCINOLONE [Concomitant]
     Dosage: UNK
     Route: 061
     Dates: start: 20110801
  3. LEVAQUIN [Concomitant]
     Dosage: 500 MG, UNK
     Route: 048
     Dates: start: 20110703, end: 20110706
  4. ZESTRIL [Concomitant]
     Dosage: 40 MG, UNK
     Route: 048
     Dates: start: 19980501, end: 20110722
  5. CALCIUM CARBONATE [Concomitant]
     Dosage: 600 MG, UNK
     Route: 048
     Dates: start: 20110620
  6. BLINDED DENOSUMAB [Suspect]
     Indication: BREAST CANCER
     Route: 058
     Dates: start: 20110620
  7. SYNTHROID [Concomitant]
     Dosage: 0.05 MUG, UNK
     Route: 048
     Dates: start: 20090701
  8. TOPROL-XL [Concomitant]
     Dosage: 100 MG, UNK
     Route: 048
     Dates: start: 19980501
  9. LASIX [Concomitant]
     Dosage: 40 MG, UNK
     Route: 048
     Dates: start: 19980501, end: 20110722
  10. CALCIUM VITAMIN D [Concomitant]
     Dosage: UNK
     Route: 048
     Dates: start: 20110620
  11. BLINDED PLACEBO [Suspect]
     Indication: BREAST CANCER
     Route: 058
     Dates: start: 20110620
  12. DOCETAXEL [Concomitant]
     Dosage: UNK
     Dates: start: 20110620
  13. CYCLOPHOSPHAMIDE [Concomitant]
     Dosage: UNK
     Dates: start: 20110620
  14. DOXORUBICIN HCL [Concomitant]
     Dosage: UNK
     Dates: start: 20110620
  15. VITAMIN D [Concomitant]
     Route: 048
     Dates: start: 20110620

REACTIONS (3)
  - ANAEMIA [None]
  - HYPOTENSION [None]
  - FATIGUE [None]
